FAERS Safety Report 9782925 (Version 1)
Quarter: 2013Q4

REPORT INFORMATION
  Report Type: Spontaneous
  Country: US (occurrence: US)
  Receive Date: 20131226
  Receipt Date: 20131226
  Transmission Date: 20140711
  Serious: No
  Sender: FDA-Public Use
  Company Number: US-ABBVIE-13P-163-1130375-00

PATIENT
  Age: 79 Year
  Sex: Male
  Weight: 74 kg

DRUGS (7)
  1. LUPRON DEPOT [Suspect]
     Indication: PROSTATE CANCER
     Dates: start: 201306
  2. LUPRON DEPOT [Suspect]
     Dates: start: 201305
  3. LUPRON DEPOT [Suspect]
     Dates: start: 2008
  4. ATACAND [Concomitant]
     Indication: HYPERTENSION
  5. AMLODIPINE [Concomitant]
     Indication: HYPERTENSION
  6. THYROXINE [Concomitant]
     Indication: HYPOTHYROIDISM
  7. BICALUTAMIDE [Concomitant]
     Indication: PROSTATE CANCER

REACTIONS (2)
  - Arthralgia [Not Recovered/Not Resolved]
  - Musculoskeletal pain [Not Recovered/Not Resolved]
